FAERS Safety Report 5197226-9 (Version None)
Quarter: 2006Q4

REPORT INFORMATION
  Report Type: 
  Country: None (occurrence: None)
  Receive Date: 20061228
  Receipt Date: 20061212
  Transmission Date: 20070319
  Serious: Yes (Hospitalization)
  Sender: FDA-Public Use
  Company Number: 2006AL003922

PATIENT
  Age: 37 Year
  Sex: Male

DRUGS (3)
  1. DICLOFENAC SODIUM [Suspect]
     Indication: BACK PAIN
     Dosage: 50 MG; TID; PO
     Route: 048
     Dates: start: 20061108, end: 20061118
  2. DIAZEPAM [Concomitant]
  3. CO-CODAMOL [Concomitant]

REACTIONS (3)
  - ANGIONEUROTIC OEDEMA [None]
  - ARTHRALGIA [None]
  - RASH [None]
